FAERS Safety Report 23911086 (Version 1)
Quarter: 2024Q2

REPORT INFORMATION
  Report Type: Spontaneous
  Country: NL (occurrence: NL)
  Receive Date: 20240528
  Receipt Date: 20240528
  Transmission Date: 20240716
  Serious: Yes (Hospitalization, Other)
  Sender: FDA-Public Use
  Company Number: NL-DR. FALK PHARMA GMBH-BU-116-SA-140-24

PATIENT
  Sex: Male

DRUGS (14)
  1. BUDESONIDE [Suspect]
     Active Substance: BUDESONIDE
     Indication: Crohn^s disease
     Route: 065
     Dates: start: 2011
  2. MESALAMINE [Suspect]
     Active Substance: MESALAMINE
     Indication: Crohn^s disease
     Route: 065
     Dates: start: 2011
  3. AZATHIOPRINE [Suspect]
     Active Substance: AZATHIOPRINE
     Indication: Crohn^s disease
     Route: 065
  4. INFLECTRA [Suspect]
     Active Substance: INFLIXIMAB-DYYB
     Indication: Crohn^s disease
     Dosage: 10MG/KG
     Route: 065
     Dates: start: 202107, end: 202201
  5. INFLECTRA [Suspect]
     Active Substance: INFLIXIMAB-DYYB
     Route: 065
     Dates: start: 202201
  6. BOTOX [Suspect]
     Active Substance: ONABOTULINUMTOXINA
     Indication: Stoma site discharge
     Dosage: PRN
     Route: 065
     Dates: start: 202202, end: 202202
  7. USTEKINUMAB [Suspect]
     Active Substance: USTEKINUMAB
     Indication: Crohn^s disease
     Route: 065
     Dates: start: 202209, end: 202307
  8. INFLIXIMAB [Suspect]
     Active Substance: INFLIXIMAB
     Indication: Crohn^s disease
     Route: 065
     Dates: start: 2012, end: 2014
  9. INFLIXIMAB [Suspect]
     Active Substance: INFLIXIMAB
     Route: 065
     Dates: start: 2018, end: 2022
  10. INFLIXIMAB [Suspect]
     Active Substance: INFLIXIMAB
     Route: 065
     Dates: start: 2014, end: 2018
  11. ADALIMUMAB [Suspect]
     Active Substance: ADALIMUMAB\ISOPROPYL ALCOHOL
     Indication: Crohn^s disease
     Route: 065
     Dates: start: 2009
  12. THIOGUANINE ANHYDROUS [Suspect]
     Active Substance: THIOGUANINE ANHYDROUS
     Indication: Crohn^s disease
     Route: 065
     Dates: start: 201705, end: 2021
  13. RISANKIZUMAB [Suspect]
     Active Substance: RISANKIZUMAB
     Indication: Crohn^s disease
     Route: 065
  14. REMICADE [Suspect]
     Active Substance: INFLIXIMAB
     Indication: Crohn^s disease
     Dosage: EVERY 8 WEEKS
     Route: 065
     Dates: start: 2020

REACTIONS (22)
  - Fistula [Unknown]
  - Ileocaecal resection [Unknown]
  - Small intestinal obstruction [Unknown]
  - Spinal epidural haematoma [Unknown]
  - Stoma site discharge [Unknown]
  - Stoma creation [Unknown]
  - Sepsis [Unknown]
  - Ulcer [Unknown]
  - Surgery [Unknown]
  - Laparotomy [Unknown]
  - Ileostomy [Unknown]
  - Ileal stenosis [Unknown]
  - Small intestinal stenosis [Unknown]
  - Ileocolostomy [Recovered/Resolved]
  - Gastrointestinal stoma complication [Unknown]
  - Enterocutaneous fistula [Recovered/Resolved]
  - Incisional hernia [Unknown]
  - Leukopenia [Unknown]
  - Rectal haemorrhage [Unknown]
  - Haemoglobin decreased [Unknown]
  - Obstruction [Unknown]
  - Pyrexia [Unknown]

NARRATIVE: CASE EVENT DATE: 20140101
